FAERS Safety Report 6214661-8 (Version None)
Quarter: 2009Q2

REPORT INFORMATION
  Report Type: 
  Country: None (occurrence: None)
  Receive Date: 20090604
  Receipt Date: 20090522
  Transmission Date: 20091009
  Serious: Yes (Other)
  Sender: FDA-Public Use
  Company Number: JP-PFIZER INC-2009209243

PATIENT
  Age: 26 Year

DRUGS (4)
  1. ZOLOFT [Suspect]
     Indication: APATHY
     Dosage: UNK
     Route: 048
     Dates: start: 20090318, end: 20090428
  2. WYPAX [Concomitant]
     Indication: APATHY
     Dosage: UNK
     Route: 048
     Dates: start: 20090218
  3. WYPAX [Concomitant]
     Indication: FLASHBACK
  4. LORAZEPAM [Concomitant]
     Dosage: 1 MG, 2X/DAY
     Route: 048
     Dates: start: 20090218

REACTIONS (7)
  - AMNESIA [None]
  - ASTHENIA [None]
  - DEPRESSED LEVEL OF CONSCIOUSNESS [None]
  - DYSLALIA [None]
  - FALL [None]
  - GAIT DISTURBANCE [None]
  - INJURY [None]
